FAERS Safety Report 15579294 (Version 1)
Quarter: 2018Q4

REPORT INFORMATION
  Report Type: Spontaneous
  Country: US (occurrence: US)
  Receive Date: 20181029
  Receipt Date: 20181029
  Transmission Date: 20190205
  Serious: No
  Sender: FDA-Public Use
  Company Number: None

PATIENT
  Age: 29 Year
  Sex: Female

DRUGS (1)
  1. BOTOX [Suspect]
     Active Substance: ONABOTULINUMTOXINA
     Indication: MIGRAINE
     Dosage: ?          OTHER STRENGTH:200U/VL;OTHER DOSE:200 UNITS;OTHER FREQUENCY:EVERY 3 MONTHS;?
     Route: 030
     Dates: start: 20160523

REACTIONS (2)
  - Injection site scab [None]
  - Dry skin [None]

NARRATIVE: CASE EVENT DATE: 20181001
